FAERS Safety Report 5046647-3 (Version None)
Quarter: 2006Q3

REPORT INFORMATION
  Report Type: 
  Country: None (occurrence: None)
  Receive Date: 20060710
  Receipt Date: 20060628
  Transmission Date: 20061208
  Serious: Yes (Hospitalization, Other)
  Sender: FDA-Public Use
  Company Number: FR-BRISTOL-MYERS SQUIBB COMPANY-13428768

PATIENT
  Age: 43 Year
  Sex: Female

DRUGS (3)
  1. VIDEX EC [Suspect]
     Indication: HIV INFECTION
     Route: 048
     Dates: end: 20060607
  2. SUSTIVA [Suspect]
  3. VIREAD [Suspect]
     Dates: end: 20060607

REACTIONS (4)
  - CHOLELITHIASIS [None]
  - HEPATOMEGALY [None]
  - PYELONEPHRITIS ACUTE [None]
  - RENAL FAILURE ACUTE [None]
